FAERS Safety Report 6161187-6 (Version None)
Quarter: 2009Q2

REPORT INFORMATION
  Report Type: 
  Country: None (occurrence: None)
  Receive Date: 20090421
  Receipt Date: 20071112
  Transmission Date: 20091009
  Serious: Yes (Hospitalization, Other)
  Sender: FDA-Public Use
  Company Number: US-ASTRAZENECA-2006UW21628

PATIENT
  Age: 14008 Day
  Sex: Female
  Weight: 104.8 kg

DRUGS (28)
  1. SEROQUEL [Suspect]
     Indication: DEPRESSION
     Dosage: 150 MG, 300 MG
     Route: 048
     Dates: start: 20020417, end: 20020626
  2. SEROQUEL [Suspect]
     Indication: ANXIETY
     Dosage: 150 MG, 300 MG
     Route: 048
     Dates: start: 20020417, end: 20020626
  3. SEROQUEL [Suspect]
     Indication: POOR QUALITY SLEEP
     Dosage: 150 MG, 300 MG
     Route: 048
     Dates: start: 20020417, end: 20020626
  4. SEROQUEL [Suspect]
     Dosage: 100-200 MG
     Route: 048
     Dates: start: 20020417
  5. SEROQUEL [Suspect]
     Dosage: 100-200 MG
     Route: 048
     Dates: start: 20020417
  6. SEROQUEL [Suspect]
     Dosage: 100-200 MG
     Route: 048
     Dates: start: 20020417
  7. XENICAL [Concomitant]
     Dates: start: 20000401, end: 20020822
  8. RISPERDAL [Concomitant]
     Dates: start: 20030731
  9. TRILAFON [Concomitant]
     Dates: start: 20020417
  10. ZYPREXA [Concomitant]
     Dates: start: 20030327
  11. EFFEXOR [Concomitant]
  12. K DUR [Concomitant]
  13. SYNTHROID [Concomitant]
  14. PROTONIX [Concomitant]
  15. VIOXX [Concomitant]
  16. METAMUCIL [Concomitant]
  17. OXYCODONE HCL [Concomitant]
  18. ACYCLOVIR [Concomitant]
  19. MAGNESIUM HYDROXIDE TAB [Concomitant]
  20. MAXZIDE [Concomitant]
  21. VALTREX [Concomitant]
  22. ACETAMINOPHEN [Concomitant]
  23. FENTANYL CITRATE [Concomitant]
  24. VISTARIL [Concomitant]
  25. MORPHINE SULFATE [Concomitant]
  26. NALOXONE HCL [Concomitant]
  27. PROMETHAZINE [Concomitant]
  28. TRAZODONE HCL [Concomitant]

REACTIONS (44)
  - ABDOMINAL DISTENSION [None]
  - ABDOMINAL PAIN [None]
  - ABDOMINAL PAIN LOWER [None]
  - ANXIETY [None]
  - ARTHRALGIA [None]
  - ARTHRITIS [None]
  - BACK PAIN [None]
  - CERVICAL DYSPLASIA [None]
  - CHEST PAIN [None]
  - CONSTIPATION [None]
  - COUGH [None]
  - DECREASED APPETITE [None]
  - DELUSION [None]
  - DIABETES MELLITUS [None]
  - DIARRHOEA [None]
  - DIZZINESS [None]
  - DYSPNOEA [None]
  - FATIGUE [None]
  - HAEMORRHOIDS [None]
  - HEADACHE [None]
  - HYPERCHOLESTEROLAEMIA [None]
  - HYPERTENSION [None]
  - INFLUENZA [None]
  - INSOMNIA [None]
  - MAJOR DEPRESSION [None]
  - MUSCULAR WEAKNESS [None]
  - MUSCULOSKELETAL STIFFNESS [None]
  - MYALGIA [None]
  - NAUSEA [None]
  - OSTEOARTHRITIS [None]
  - OVARIAN CYST [None]
  - PAIN IN EXTREMITY [None]
  - PELVIC PAIN [None]
  - PERITONEAL ADHESIONS [None]
  - PHARYNGITIS [None]
  - POOR QUALITY SLEEP [None]
  - PYREXIA [None]
  - RECTAL HAEMORRHAGE [None]
  - SINUSITIS [None]
  - STRESS URINARY INCONTINENCE [None]
  - SUICIDAL IDEATION [None]
  - SWELLING [None]
  - UPPER RESPIRATORY TRACT INFECTION [None]
  - URINARY TRACT INFECTION [None]
